FAERS Safety Report 5352072-8 (Version None)
Quarter: 2007Q2

REPORT INFORMATION
  Report Type: 
  Country: None (occurrence: None)
  Receive Date: 20070607
  Receipt Date: 20070522
  Transmission Date: 20071010
  Serious: Yes (Death, Hospitalization)
  Sender: FDA-Public Use
  Company Number: S07-UKI-02263-01

PATIENT
  Age: 40 Year
  Sex: Female

DRUGS (5)
  1. ACAMPROSATE [Suspect]
     Indication: ALCOHOLISM
     Dosage: 666 TID PO
     Route: 048
     Dates: start: 20070412
  2. NICOTINE [Suspect]
     Indication: SMOKING CESSATION THERAPY
     Dates: start: 20070412
  3. THIAMINE [Concomitant]
  4. VITAMIN B-12 [Concomitant]
  5. VITAMIN B CONCENTRATES [Concomitant]

REACTIONS (3)
  - ALCOHOLIC LIVER DISEASE [None]
  - DIARRHOEA [None]
  - JAUNDICE [None]
